FAERS Safety Report 15647420 (Version 1)
Quarter: 2018Q4

REPORT INFORMATION
  Report Type: Spontaneous
  Country: TN (occurrence: TN)
  Receive Date: 20181122
  Receipt Date: 20181122
  Transmission Date: 20190205
  Serious: Yes (Other)
  Sender: FDA-Public Use
  Company Number: TN-MACLEODS PHARMACEUTICALS US LTD-MAC2018018695

PATIENT

DRUGS (3)
  1. COLCHICINE. [Interacting]
     Active Substance: COLCHICINE
     Indication: URINARY TRACT INFECTION
     Dosage: 1 MILLIGRAM, QD
     Route: 065
     Dates: start: 20170714, end: 20170724
  2. LEVOFLOXACIN. [Suspect]
     Active Substance: LEVOFLOXACIN
     Indication: URINARY TRACT INFECTION
     Dosage: 500 MILLIGRAM, QD
     Route: 065
     Dates: start: 20170714, end: 20170724
  3. FENOFIBRATE. [Interacting]
     Active Substance: FENOFIBRATE
     Indication: DYSLIPIDAEMIA
     Dosage: UNK
     Route: 065
     Dates: start: 2007, end: 20170724

REACTIONS (4)
  - Rhabdomyolysis [Recovered/Resolved]
  - Drug interaction [Recovered/Resolved]
  - Toxicity to various agents [Recovered/Resolved]
  - Off label use [Unknown]
